FAERS Safety Report 12757625 (Version 2)
Quarter: 2016Q4

REPORT INFORMATION
  Report Type: Spontaneous
  Country: GB (occurrence: GB)
  Receive Date: 20160919
  Receipt Date: 20161003
  Transmission Date: 20170207
  Serious: Yes (Life-Threatening, Hospitalization, Disabling)
  Sender: FDA-Public Use
  Company Number: GB-ACCORD-043951

PATIENT
  Age: 50 Year
  Sex: Male
  Weight: 81 kg

DRUGS (8)
  1. GRANULOCYTE COLONY STIMULATING [Concomitant]
     Active Substance: GRANULOCYTE COLONY-STIMULATING FACTOR NOS
  2. ETOPOSIDE. [Concomitant]
     Active Substance: ETOPOSIDE
  3. AMLODIPINE [Concomitant]
     Active Substance: AMLODIPINE BESYLATE
  4. ONDANSETRON [Concomitant]
     Active Substance: ONDANSETRON
  5. CYCLIZINE [Concomitant]
     Active Substance: CYCLIZINE
  6. DEXAMETHASONE. [Concomitant]
     Active Substance: DEXAMETHASONE
  7. APREPITANT. [Concomitant]
     Active Substance: APREPITANT
  8. CISPLATIN. [Suspect]
     Active Substance: CISPLATIN
     Indication: TESTICULAR CANCER METASTATIC
     Dosage: RECEIVED 1ST CYCLE FROM JUL-2016.??ALSO 2ND CYCLE RECEIVED,20 MG/M2 FROM 01-AUG-2016 TO 05-AUG-201
     Route: 042
     Dates: start: 201607, end: 20160805

REACTIONS (2)
  - Intestinal infarction [Recovered/Resolved with Sequelae]
  - Mesenteric artery thrombosis [Unknown]

NARRATIVE: CASE EVENT DATE: 20160808
